FAERS Safety Report 22073609 (Version 2)
Quarter: 2023Q1

REPORT INFORMATION
  Report Type: Spontaneous
  Country: GR (occurrence: GR)
  Receive Date: 20230308
  Receipt Date: 20230322
  Transmission Date: 20230418
  Serious: Yes (Other)
  Sender: FDA-Public Use
  Company Number: GR-VERTEX PHARMACEUTICALS-2023-003370

PATIENT
  Age: 36 Year
  Sex: Female

DRUGS (13)
  1. ELEXACAFTOR\IVACAFTOR\TEZACAFTOR [Suspect]
     Active Substance: ELEXACAFTOR\IVACAFTOR\TEZACAFTOR
     Indication: Cystic fibrosis
     Dosage: REDUCED DOSE - 1 TAB IN AM, 1 TAB PM
     Route: 048
     Dates: start: 20230207, end: 20230214
  2. ELEXACAFTOR\IVACAFTOR\TEZACAFTOR [Suspect]
     Active Substance: ELEXACAFTOR\IVACAFTOR\TEZACAFTOR
     Dosage: FULL DOSE - 2 TABS IN AM
     Route: 048
     Dates: start: 20230214, end: 20230221
  3. ELEXACAFTOR\IVACAFTOR\TEZACAFTOR [Suspect]
     Active Substance: ELEXACAFTOR\IVACAFTOR\TEZACAFTOR
     Dosage: REDUCED DOSE - 1 TAB IN AM, 1 TAB PM
     Route: 048
     Dates: start: 20230221, end: 20230226
  4. KALYDECO [Suspect]
     Active Substance: IVACAFTOR
     Indication: Cystic fibrosis
     Dosage: 1 TAB IN PM
     Route: 048
     Dates: start: 20230207, end: 20230226
  5. PAROXETINE [Concomitant]
     Active Substance: PAROXETINE
     Indication: Anxiety disorder
     Dosage: 20 MG A DAY
     Dates: start: 2013, end: 20230220
  6. PAROXETINE [Concomitant]
     Active Substance: PAROXETINE
     Indication: Depressive symptom
     Dosage: 30 MG A DAY
     Dates: start: 20230221
  7. PAROXETINE [Concomitant]
     Active Substance: PAROXETINE
     Indication: Withdrawal syndrome
  8. PAROXETINE [Concomitant]
     Active Substance: PAROXETINE
     Indication: Suicidal ideation
  9. COLISTIN [Concomitant]
     Active Substance: COLISTIN
     Dosage: SOL
  10. PULMOZYME [Concomitant]
     Active Substance: DORNASE ALFA
     Dosage: SOL
  11. ALBUTEROL [Concomitant]
     Active Substance: ALBUTEROL
     Dosage: 2 PUFFS; INH
  12. CREON [Concomitant]
     Active Substance: PANCRELIPASE AMYLASE\PANCRELIPASE LIPASE\PANCRELIPASE PROTEASE
     Dosage: CAPS
  13. OMEPRAZOLE [Concomitant]
     Active Substance: OMEPRAZOLE
     Dosage: CAPS

REACTIONS (3)
  - Suicidal ideation [Recovered/Resolved]
  - Withdrawal syndrome [Recovered/Resolved]
  - Depressive symptom [Recovered/Resolved]

NARRATIVE: CASE EVENT DATE: 20230214
